FAERS Safety Report 9226844 (Version 1)
Quarter: 2013Q2

REPORT INFORMATION
  Report Type: Report from Study
  Country: CA (occurrence: CA)
  Receive Date: 20130412
  Receipt Date: 20130412
  Transmission Date: 20140414
  Serious: Yes (Hospitalization)
  Sender: FDA-Public Use
  Company Number: CA-JNJFOC-20130403308

PATIENT
  Age: 52 Year
  Sex: Male
  Weight: 109 kg

DRUGS (3)
  1. REMICADE [Suspect]
     Indication: CROHN^S DISEASE
     Route: 042
     Dates: start: 20120628, end: 20130211
  2. PANTOLOC [Concomitant]
     Route: 048
  3. EFFEXOR [Concomitant]
     Route: 048

REACTIONS (2)
  - Intestinal obstruction [Recovering/Resolving]
  - Gastrointestinal inflammation [Recovering/Resolving]
